FAERS Safety Report 9157974 (Version 1)
Quarter: 2013Q1

REPORT INFORMATION
  Report Type: Spontaneous
  Country: US (occurrence: US)
  Receive Date: 20130312
  Receipt Date: 20130312
  Transmission Date: 20140127
  Serious: Yes (Hospitalization)
  Sender: FDA-Public Use
  Company Number: US-B.I. PHARMACEUTICALS,INC./RIDGEFIELD-2013-BI-06275GD

PATIENT
  Age: 71 Year
  Sex: Female

DRUGS (2)
  1. BISACODYL [Suspect]
     Indication: CONSTIPATION
     Dosage: 2 TABLETS (WITHOUT SPECIFICATION OF TIME FRAME)
     Route: 048
  2. BISPHOSPHONATES [Concomitant]

REACTIONS (6)
  - Colitis ischaemic [Unknown]
  - Haematochezia [Recovered/Resolved]
  - Diarrhoea [Recovered/Resolved]
  - Abdominal pain [Unknown]
  - Cold sweat [Unknown]
  - Hyperhidrosis [Unknown]
